FAERS Safety Report 25763128 (Version 2)
Quarter: 2025Q3

REPORT INFORMATION
  Report Type: Report from Study
  Country: US (occurrence: US)
  Receive Date: 20250905
  Receipt Date: 20250930
  Transmission Date: 20251020
  Serious: Yes (Hospitalization)
  Sender: ABBVIE
  Company Number: US-ABBVIE-6434651

PATIENT
  Age: 61 Year
  Sex: Male

DRUGS (1)
  1. VYALEV [Suspect]
     Active Substance: FOSCARBIDOPA\FOSLEVODOPA
     Indication: Parkinson^s disease
     Route: 058
     Dates: start: 20250430, end: 20250825

REACTIONS (5)
  - Bacterial infection [Unknown]
  - Catheter site erythema [Unknown]
  - Catheter site induration [Unknown]
  - Pyrexia [Unknown]
  - Catheter site warmth [Unknown]

NARRATIVE: CASE EVENT DATE: 20250101
